FAERS Safety Report 5222841-3 (Version None)
Quarter: 2007Q1

REPORT INFORMATION
  Report Type: 
  Country: None (occurrence: None)
  Receive Date: 20070129
  Receipt Date: 20070124
  Transmission Date: 20070707
  Serious: Yes (Hospitalization)
  Sender: FDA-Public Use
  Company Number: FR-GLAXOSMITHKLINE-B0455627A

PATIENT
  Age: 41 Year
  Sex: Female

DRUGS (4)
  1. AUGMENTIN '125' [Suspect]
     Indication: RHINITIS
     Dosage: 2G PER DAY
     Route: 048
     Dates: start: 20060401, end: 20070112
  2. NUROFEN [Concomitant]
     Indication: RHINITIS
     Route: 065
  3. ACETAMINOPHEN [Concomitant]
     Indication: RHINITIS
     Route: 065
  4. RHINADVIL [Concomitant]
     Indication: RHINITIS
     Route: 065

REACTIONS (3)
  - IDIOPATHIC THROMBOCYTOPENIC PURPURA [None]
  - PETECHIAE [None]
  - PLATELET COUNT DECREASED [None]
